FAERS Safety Report 8802469 (Version 1)
Quarter: 2012Q4

REPORT INFORMATION
  Report Type: 
  Country: MY (occurrence: MY)
  Receive Date: 20120921
  Receipt Date: 20120921
  Transmission Date: 20130627
  Serious: Yes (Death, Other)
  Sender: FDA-Public Use
  Company Number: PHHY2007MY011722

PATIENT

DRUGS (1)
  1. GLIVEC [Suspect]
     Indication: CHRONIC MYELOID LEUKAEMIA
     Dates: start: 20070309

REACTIONS (5)
  - Death [Fatal]
  - Typhoid fever [Unknown]
  - Blast crisis in myelogenous leukaemia [Unknown]
  - Hepatic failure [Unknown]
  - Incorrect dose administered [None]
